FAERS Safety Report 17113038 (Version 2)
Quarter: 2019Q4

REPORT INFORMATION
  Report Type: Report from Study
  Country: GR (occurrence: GR)
  Receive Date: 20191204
  Receipt Date: 20191225
  Transmission Date: 20200122
  Serious: Yes (Hospitalization)
  Sender: FDA-Public Use
  Company Number: GR-BAUSCH-BL-2019-063826

PATIENT
  Age: 72 Year
  Sex: Male

DRUGS (3)
  1. ZINADOL [Concomitant]
     Active Substance: CEFUROXIME AXETIL
     Indication: URINARY TRACT INFECTION
  2. KYNTHEUM [Suspect]
     Active Substance: BRODALUMAB
     Indication: PSORIASIS
     Dosage: 210 MG IN WEEKS 0,1,2 AND THEN EVERY 2 WEEKS
     Route: 058
     Dates: start: 20191004, end: 2019
  3. KYNTHEUM [Suspect]
     Active Substance: BRODALUMAB
     Dosage: 210 MG IN WEEKS 0,1,2 AND THEN EVERY 2 WEEKS
     Route: 058
     Dates: start: 20191206, end: 2019

REACTIONS (2)
  - Erythema [Recovered/Resolved]
  - Rash [Recovered/Resolved]

NARRATIVE: CASE EVENT DATE: 20191123
